FAERS Safety Report 6449699-9 (Version None)
Quarter: 2009Q4

REPORT INFORMATION
  Report Type: 
  Country: None (occurrence: None)
  Receive Date: 20091120
  Receipt Date: 20091110
  Transmission Date: 20100525
  Serious: Yes (Hospitalization)
  Sender: FDA-Public Use
  Company Number: ES-AMGEN-KDC374130

PATIENT
  Sex: Male

DRUGS (8)
  1. PANITUMUMAB [Suspect]
     Indication: COLORECTAL CANCER
     Route: 042
     Dates: start: 20091028
  2. IRINOTECAN HCL [Suspect]
     Dates: start: 20091028
  3. FLUOROURACIL [Suspect]
     Route: 042
     Dates: start: 20091028
  4. LEUCOVORIN CALCIUM [Suspect]
     Route: 042
     Dates: start: 20091028
  5. LOPERAMIDE [Concomitant]
     Dates: start: 20091028
  6. METOCLOPRAMIDE [Concomitant]
     Dates: start: 20091028
  7. CORTICOSTEROIDS [Concomitant]
     Route: 061
  8. ATARAX [Concomitant]

REACTIONS (1)
  - FEBRILE NEUTROPENIA [None]
